FAERS Safety Report 13879417 (Version 1)
Quarter: 2017Q3

REPORT INFORMATION
  Report Type: Spontaneous
  Country: US (occurrence: None)
  Receive Date: 20170814
  Receipt Date: 20170814
  Transmission Date: 20171127
  Serious: Yes (Hospitalization)
  Sender: FDA-Public Use
  Company Number: None

PATIENT
  Age: 73 Year
  Sex: Female
  Weight: 102.2 kg

DRUGS (2)
  1. CYTARABINE. [Suspect]
     Active Substance: CYTARABINE
     Dates: end: 20170721
  2. ETOPOSIDE (VP-16) [Suspect]
     Active Substance: ETOPOSIDE
     Dates: end: 20170721

REACTIONS (5)
  - Bone marrow failure [None]
  - Pancytopenia [None]
  - Escherichia bacteraemia [None]
  - Febrile neutropenia [None]
  - Blood culture positive [None]

NARRATIVE: CASE EVENT DATE: 20170728
